FAERS Safety Report 10653761 (Version 1)
Quarter: 2014Q4

REPORT INFORMATION
  Report Type: Spontaneous
  Country: US (occurrence: None)
  Receive Date: 20141212
  Receipt Date: 20141212
  Transmission Date: 20150529
  Serious: Yes (Hospitalization)
  Sender: FDA-Public Use
  Company Number: None

PATIENT
  Age: 72 Year
  Sex: Female
  Weight: 81.65 kg

DRUGS (13)
  1. ASPIRIN. [Concomitant]
     Active Substance: ASPIRIN
  2. CRESTOR [Concomitant]
     Active Substance: ROSUVASTATIN CALCIUM
  3. OMEPRAZOLE. [Concomitant]
     Active Substance: OMEPRAZOLE
  4. CALCIUM [Concomitant]
     Active Substance: CALCIUM
  5. LACTULOSE. [Concomitant]
     Active Substance: LACTULOSE
  6. FISH OIL [Concomitant]
     Active Substance: FISH OIL
  7. CLOPIDOGREL [Suspect]
     Active Substance: CLOPIDOGREL BISULFATE
     Indication: CEREBROVASCULAR ACCIDENT PROPHYLAXIS
     Dosage: 75MG?1 75MG TABLET?1 X DAILY A.M?BY MOUTH W/WATER
     Route: 048
     Dates: start: 20140206, end: 20140826
  8. POLYETHYLENE GLYCOL [Concomitant]
     Active Substance: POLYETHYLENE GLYCOLS
  9. NORTRIPTYLINE [Concomitant]
     Active Substance: NORTRIPTYLINE
  10. OSTEOBIFLEX [Concomitant]
  11. METOPROLOL [Concomitant]
     Active Substance: METOPROLOL
  12. STOOL SOFTNER [Concomitant]
  13. CENTRUM VIT [Concomitant]

REACTIONS (4)
  - Cellulitis [None]
  - Contusion [None]
  - Pain [None]
  - Balance disorder [None]
